FAERS Safety Report 24938221 (Version 1)
Quarter: 2025Q1

REPORT INFORMATION
  Report Type: Spontaneous
  Country: JP (occurrence: JP)
  Receive Date: 20250206
  Receipt Date: 20250206
  Transmission Date: 20250409
  Serious: Yes (Other)
  Sender: JOHNSON AND JOHNSON
  Company Number: JP-JNJFOC-20250213277

PATIENT

DRUGS (1)
  1. CANAGLIFLOZIN [Suspect]
     Active Substance: CANAGLIFLOZIN
     Indication: Product used for unknown indication
     Route: 048

REACTIONS (76)
  - Erythema multiforme [Unknown]
  - Retinal haemorrhage [Unknown]
  - Enteritis infectious [Unknown]
  - Cataract [Unknown]
  - Glaucoma [Unknown]
  - Ocular hypertension [Unknown]
  - Punctate keratitis [Unknown]
  - Urethral haemorrhage [Unknown]
  - Pyelonephritis [Unknown]
  - Nasopharyngitis [Unknown]
  - Tinea pedis [Unknown]
  - Pharyngitis [Unknown]
  - Bronchitis [Unknown]
  - Gingivitis [Unknown]
  - Chronic sinusitis [Unknown]
  - Dermatophytosis of nail [Unknown]
  - Herpes zoster [Unknown]
  - Sinusitis [Unknown]
  - Helicobacter gastritis [Unknown]
  - Dyspepsia [Unknown]
  - Arthralgia [Unknown]
  - Periarthritis [Unknown]
  - Tenosynovitis [Unknown]
  - Trigger finger [Unknown]
  - Musculoskeletal stiffness [Unknown]
  - Spinal stenosis [Unknown]
  - Blood triglycerides increased [Unknown]
  - Platelet count decreased [Unknown]
  - Angiocardiogram [Unknown]
  - Dyshidrotic eczema [Unknown]
  - Miliaria [Unknown]
  - Seborrhoeic dermatitis [Unknown]
  - Asteatosis [Unknown]
  - Epicondylitis [Unknown]
  - Hand fracture [Unknown]
  - Wound [Unknown]
  - Dry eye [Unknown]
  - Upper respiratory tract inflammation [Unknown]
  - Rhinitis allergic [Unknown]
  - Tooth extraction [Unknown]
  - Benign tumour excision [Unknown]
  - Tumour excision [Unknown]
  - Cataract operation [Unknown]
  - Lipoma [Unknown]
  - Micturition disorder [Unknown]
  - Dental caries [Unknown]
  - Hepatic steatosis [Unknown]
  - Iron deficiency anaemia [Unknown]
  - Thyroid cyst [Unknown]
  - Seasonal allergy [Unknown]
  - Insomnia [Unknown]
  - Periodontitis [Unknown]
  - Urinary tract infection [Unknown]
  - Conjunctivitis [Unknown]
  - Cystitis [Unknown]
  - Candida infection [Unknown]
  - Gastritis [Unknown]
  - Constipation [Unknown]
  - Diarrhoea [Unknown]
  - Chronic gastritis [Unknown]
  - Abdominal pain [Unknown]
  - Vomiting [Unknown]
  - Back pain [Unknown]
  - Muscular weakness [Unknown]
  - Blood urine present [Unknown]
  - Weight decreased [Unknown]
  - Eczema asteatotic [Unknown]
  - Dermatitis [Unknown]
  - Eczema nummular [Unknown]
  - Rash [Unknown]
  - Hyperglycaemia [Unknown]
  - Benign prostatic hyperplasia [Unknown]
  - Pruritus genital [Unknown]
  - Vertigo [Unknown]
  - Bronchitis chronic [Unknown]
  - Hypoglycaemia [Unknown]
